FAERS Safety Report 7482097-8 (Version None)
Quarter: 2011Q2

REPORT INFORMATION
  Report Type: 
  Country: None (occurrence: None)
  Receive Date: 20110516
  Receipt Date: 20110504
  Transmission Date: 20111010
  Serious: Yes (Hospitalization)
  Sender: FDA-Public Use
  Company Number: IE-ELI_LILLY_AND_COMPANY-IE201104003120

PATIENT
  Sex: Female

DRUGS (11)
  1. LIPITOR [Concomitant]
  2. RITUXIMAB [Concomitant]
  3. AMITRIPTYLINE HCL [Concomitant]
  4. FORTEO [Suspect]
     Indication: OSTEOPOROSIS
     Dosage: 20 UG, UNK
     Dates: start: 20110330
  5. PRILOSEC [Concomitant]
  6. SEPTRA [Concomitant]
  7. ELTROXIN [Concomitant]
  8. METHOTREXATE [Concomitant]
  9. DEXAMETHASONE [Concomitant]
  10. FOLIC ACID [Concomitant]
  11. CITALOPRAM HYDROBROMIDE [Concomitant]

REACTIONS (3)
  - BONE PAIN [None]
  - PATHOLOGICAL FRACTURE [None]
  - MUSCULOSKELETAL CHEST PAIN [None]
